FAERS Safety Report 7700564-6 (Version None)
Quarter: 2011Q3

REPORT INFORMATION
  Report Type: 
  Country: None (occurrence: None)
  Receive Date: 20110822
  Receipt Date: 20110811
  Transmission Date: 20111222
  Serious: No
  Sender: FDA-Public Use
  Company Number: US-JNJFOC-20110807376

PATIENT
  Sex: Female
  Weight: 48.99 kg

DRUGS (1)
  1. DURAGESIC-100 [Suspect]
     Indication: LUNG NEOPLASM MALIGNANT
     Dosage: 100 UG/HR X 2 = 200 UG/HR PATCHES
     Route: 062
     Dates: start: 20101201

REACTIONS (3)
  - WRONG TECHNIQUE IN DRUG USAGE PROCESS [None]
  - PRODUCT ADHESION ISSUE [None]
  - DRUG ADMINISTERED AT INAPPROPRIATE SITE [None]
